FAERS Safety Report 12234112 (Version 1)
Quarter: 2016Q2

REPORT INFORMATION
  Report Type: Spontaneous
  Country: CA (occurrence: None)
  Receive Date: 20160401
  Receipt Date: 20160401
  Transmission Date: 20160815
  Serious: Yes (Disabling, Other)
  Sender: FDA-Public Use
  Company Number: None

PATIENT
  Age: 20 Year
  Sex: Female
  Weight: 79.38 kg

DRUGS (1)
  1. NUVARING [Suspect]
     Active Substance: ETHINYL ESTRADIOL\ETONOGESTREL
     Indication: CONTRACEPTION
     Dosage: EVERY 2 WEEKS VAGINAL
     Route: 067
     Dates: start: 20140215, end: 20160317

REACTIONS (7)
  - Muscle spasms [None]
  - Headache [None]
  - Discomfort [None]
  - Mood swings [None]
  - Fungal infection [None]
  - Weight decreased [None]
  - Malaise [None]
